FAERS Safety Report 9147236 (Version 2)
Quarter: 2013Q3

REPORT INFORMATION
  Report Type: Report from Study
  Country: US (occurrence: US)
  Receive Date: 20130307
  Receipt Date: 20130730
  Transmission Date: 20140515
  Serious: Yes (Death, Other)
  Sender: FDA-Public Use
  Company Number: US-B.I. PHARMACEUTICALS,INC./RIDGEFIELD-2013-BI-05416GD

PATIENT
  Age: 82 Year
  Sex: Male
  Weight: 93.6 kg

DRUGS (2)
  1. PRADAXA [Suspect]
     Dosage: 150 MG
     Route: 048
  2. VERAPAMIL [Suspect]

REACTIONS (2)
  - Myocardial infarction [Fatal]
  - Drug interaction [Unknown]
